FAERS Safety Report 4507146-8 (Version None)
Quarter: 2004Q4

REPORT INFORMATION
  Report Type: 
  Country: None (occurrence: None)
  Receive Date: 20041122
  Receipt Date: 20041112
  Transmission Date: 20050328
  Serious: Yes (Life-Threatening, Disabling)
  Sender: FDA-Public Use
  Company Number: US-MERCK-0411USA02377

PATIENT
  Age: 48 Year
  Sex: Female

DRUGS (2)
  1. VIOXX [Suspect]
     Indication: ARTHRITIS
     Route: 048
     Dates: start: 20021101, end: 20040101
  2. SINGULAIR [Concomitant]
     Route: 048

REACTIONS (1)
  - HYPOAESTHESIA [None]
